FAERS Safety Report 19824262 (Version 1)
Quarter: 2021Q3

REPORT INFORMATION
  Report Type: Spontaneous
  Country: AU (occurrence: AU)
  Receive Date: 20210913
  Receipt Date: 20210913
  Transmission Date: 20211014
  Serious: Yes (Other)
  Sender: FDA-Public Use
  Company Number: AU-BAUSCH-BL-2021-031459

PATIENT
  Age: 57 Year
  Sex: Female

DRUGS (4)
  1. SOLONE [Concomitant]
     Active Substance: PREDNISOLONE
     Indication: COLITIS
     Dosage: MODERATE TO HIGH LEVEL DOSE, ON AND OFF, FOR COLITIS, PREDNISOLONE 5?10MG DAILY FOR THE LAST 7 YEARS
     Dates: start: 2014
  2. SOLONE [Concomitant]
     Active Substance: PREDNISOLONE
     Dosage: THE FLARE UP PROTOCOL SHE SOMETIMES USES STARTS AT 50MG AND DECREASES 10MG PER DAY
  3. CORTIMENT (BUDESONIDE) [Suspect]
     Active Substance: BUDESONIDE
     Indication: DIARRHOEA
     Route: 048
     Dates: start: 202108
  4. CORTIMENT (BUDESONIDE) [Suspect]
     Active Substance: BUDESONIDE
     Indication: COLITIS
     Route: 048
     Dates: start: 202102, end: 202103

REACTIONS (5)
  - Drug effective for unapproved indication [Unknown]
  - Wrist fracture [Unknown]
  - Tibia fracture [Unknown]
  - Osteoporosis [Unknown]
  - Spinal compression fracture [Unknown]

NARRATIVE: CASE EVENT DATE: 202102
